FAERS Safety Report 10454786 (Version 1)
Quarter: 2014Q3

REPORT INFORMATION
  Report Type: Spontaneous
  Country: US (occurrence: US)
  Receive Date: 20140915
  Receipt Date: 20140915
  Transmission Date: 20150326
  Serious: No
  Sender: FDA-Public Use
  Company Number: US-ASTELLAS-2014US009690

PATIENT
  Age: 79 Year
  Sex: Male

DRUGS (1)
  1. XTANDI [Suspect]
     Active Substance: ENZALUTAMIDE
     Indication: PROSTATE CANCER
     Route: 048
     Dates: start: 20140218

REACTIONS (6)
  - Rhinorrhoea [Unknown]
  - Lacrimation increased [Unknown]
  - Underdose [Unknown]
  - Back pain [Unknown]
  - Pruritus [Unknown]
  - Headache [Unknown]
